FAERS Safety Report 25085062 (Version 1)
Quarter: 2025Q1

REPORT INFORMATION
  Report Type: Spontaneous
  Country: US (occurrence: US)
  Receive Date: 20250317
  Receipt Date: 20250317
  Transmission Date: 20250408
  Serious: Yes (Hospitalization)
  Sender: SANOFI AVENTIS
  Company Number: US-SA-2025SA076298

PATIENT
  Age: 54 Year
  Sex: Female
  Weight: 123.55 kg

DRUGS (2)
  1. KEVZARA [Suspect]
     Active Substance: SARILUMAB
     Indication: Polymyalgia rheumatica
     Dosage: 200 MG, QOW
     Route: 058
     Dates: start: 20240619, end: 202410
  2. FOSAMAX [Suspect]
     Active Substance: ALENDRONATE SODIUM

REACTIONS (4)
  - Cellulitis [Unknown]
  - Drug hypersensitivity [Unknown]
  - Cholecystectomy [Unknown]
  - Hepatectomy [Unknown]

NARRATIVE: CASE EVENT DATE: 20240701
